FAERS Safety Report 6110736-2 (Version None)
Quarter: 2009Q1

REPORT INFORMATION
  Report Type: 
  Country: None (occurrence: None)
  Receive Date: 20090309
  Receipt Date: 20090303
  Transmission Date: 20090719
  Serious: No
  Sender: FDA-Public Use
  Company Number: ADE2009-0466

PATIENT
  Age: 43 Year
  Sex: Female

DRUGS (9)
  1. TORSEMIDE [Suspect]
     Dosage: 40+20MG BID ORAL
     Route: 048
  2. WARFARIN SODIUM [Concomitant]
  3. DIGOXIN [Concomitant]
  4. CARVEDILOL [Concomitant]
  5. SPIRONOLACTONE [Concomitant]
  6. FUROSEMIDE TABLETS [Concomitant]
  7. LISINOPRIL [Concomitant]
  8. ASPIRIN [Concomitant]
  9. LEVOTHYROXINE TABLETS [Concomitant]

REACTIONS (2)
  - DRUG INTERACTION [None]
  - INTERNATIONAL NORMALISED RATIO INCREASED [None]
